FAERS Safety Report 4398488-8 (Version None)
Quarter: 2004Q3

REPORT INFORMATION
  Report Type: 
  Country: None (occurrence: None)
  Receive Date: 20040712
  Receipt Date: 20040630
  Transmission Date: 20050211
  Serious: No
  Sender: FDA-Public Use
  Company Number: 2004-DE-03632GD

PATIENT
  Age: 28 Year
  Sex: Female
  Weight: 97 kg

DRUGS (6)
  1. AZATHIOPRINE [Suspect]
     Indication: IMMUNOSUPPRESSION
  2. PREDNISONE TAB [Suspect]
     Indication: IMMUNOSUPPRESSION
  3. ASPIRIN [Suspect]
     Indication: PRE-ECLAMPSIA
     Dosage: 100 MG
  4. CYCLOSPORINE [Suspect]
     Indication: IMMUNOSUPPRESSION
  5. DILTIAZEM [Suspect]
     Indication: HYPERTENSION
  6. NIFEDIPINE [Suspect]
     Indication: HYPERTENSION

REACTIONS (8)
  - CAESAREAN SECTION [None]
  - COMPLICATIONS OF MATERNAL EXPOSURE TO THERAPEUTIC DRUGS [None]
  - HAEMOGLOBIN DECREASED [None]
  - HYPERTENSION [None]
  - PLACENTA PRAEVIA [None]
  - PRE-ECLAMPSIA [None]
  - PREGNANCY [None]
  - RENAL IMPAIRMENT [None]
